FAERS Safety Report 11671994 (Version 1)
Quarter: 2015Q4

REPORT INFORMATION
  Report Type: Report from Study
  Country: GB (occurrence: GB)
  Receive Date: 20151028
  Receipt Date: 20151028
  Transmission Date: 20160304
  Serious: Yes (Death, Hospitalization, Other)
  Sender: FDA-Public Use
  Company Number: GB-ROCHE-1651495

PATIENT
  Age: 67 Year
  Sex: Female

DRUGS (2)
  1. TOCILIZUMAB [Suspect]
     Active Substance: TOCILIZUMAB
     Indication: RHEUMATOID ARTHRITIS
     Route: 065
     Dates: start: 20130425
  2. HYDROXYCHLOROQUINE [Concomitant]
     Active Substance: HYDROXYCHLOROQUINE

REACTIONS (8)
  - Liver function test abnormal [Unknown]
  - Glossodynia [Unknown]
  - Cardiac arrest [Fatal]
  - Tongue dry [Unknown]
  - Cardiac failure [Fatal]
  - Chronic kidney disease [Unknown]
  - Cardiomyopathy [Unknown]
  - Myopathy [Unknown]

NARRATIVE: CASE EVENT DATE: 20141106
